FAERS Safety Report 25040509 (Version 1)
Quarter: 2025Q1

REPORT INFORMATION
  Report Type: Spontaneous
  Country: US (occurrence: US)
  Receive Date: 20250305
  Receipt Date: 20250305
  Transmission Date: 20250408
  Serious: No
  Sender: SUNOVION
  Company Number: US-SMPA-2025SPA001578AA

PATIENT

DRUGS (4)
  1. GEMTESA [Suspect]
     Active Substance: VIBEGRON
     Indication: Hypertonic bladder
     Dosage: 75 MG, ONCE A DAY; AT 2:30 IN THE AFTERNOON
     Route: 048
  2. CANDESARTAN [Concomitant]
     Active Substance: CANDESARTAN
     Indication: Blood pressure measurement
     Dosage: 60 MG, QD
     Route: 065
  3. MEDAZEPAM [Concomitant]
     Active Substance: MEDAZEPAM
     Indication: Back pain
  4. MEDAZEPAM [Concomitant]
     Active Substance: MEDAZEPAM
     Indication: Sleep disorder

REACTIONS (2)
  - Prostatic specific antigen decreased [Unknown]
  - Drug ineffective [Unknown]
